FAERS Safety Report 4674380-6 (Version None)
Quarter: 2005Q2

REPORT INFORMATION
  Report Type: 
  Country: None (occurrence: None)
  Receive Date: 20050524
  Receipt Date: 20050506
  Transmission Date: 20051028
  Serious: Yes (Hospitalization)
  Sender: FDA-Public Use
  Company Number: US_0504115044

PATIENT
  Age: 58 Year
  Sex: Female

DRUGS (6)
  1. TERIPARATIDE [Suspect]
     Indication: OSTEOPOROSIS
     Dosage: 20 UG/1 DAY
     Dates: start: 20040604, end: 20050406
  2. CORTISONE ACETATE [Concomitant]
  3. DDAVID SOLUTION [Concomitant]
  4. CITRACAL(CALCIUM CITRATE) [Concomitant]
  5. VITAMIN D [Concomitant]
  6. SYNTHROID [Concomitant]

REACTIONS (2)
  - BACK PAIN [None]
  - EXOSTOSIS [None]
